FAERS Safety Report 7760815-9 (Version None)
Quarter: 2011Q3

REPORT INFORMATION
  Report Type: 
  Country: None (occurrence: None)
  Receive Date: 20110919
  Receipt Date: 20110909
  Transmission Date: 20111222
  Serious: Yes (Other)
  Sender: FDA-Public Use
  Company Number: US-ASTRAZENECA-2011SE49535

PATIENT
  Age: 64 Year
  Sex: Male

DRUGS (3)
  1. NEXIUM [Suspect]
     Route: 048
  2. MOTRIN [Concomitant]
  3. PAIN PILLS [Concomitant]

REACTIONS (3)
  - ARTHRALGIA [None]
  - DRUG DOSE OMISSION [None]
  - GASTRIC HAEMORRHAGE [None]
